FAERS Safety Report 7226645-1 (Version None)
Quarter: 2011Q1

REPORT INFORMATION
  Report Type: 
  Country: None (occurrence: None)
  Receive Date: 20110114
  Receipt Date: 20110107
  Transmission Date: 20110831
  Serious: No
  Sender: FDA-Public Use
  Company Number: US-ROXANE LABORATORIES, INC.-2011-RO-00041RO

PATIENT
  Sex: Male

DRUGS (6)
  1. OXYMORPHONE HYDROCHLORIDE [Suspect]
     Indication: PAIN
     Route: 048
     Dates: start: 20101222
  2. LORAZEPAM [Concomitant]
     Indication: ANXIETY
  3. SERTRALINE [Concomitant]
     Indication: DEPRESSION
  4. TESTOSTERONE [Concomitant]
     Indication: BLOOD TESTOSTERONE DECREASED
  5. LAMOTRIGINE [Concomitant]
     Indication: DEPRESSION
  6. BUPROPION [Concomitant]
     Indication: DEPRESSION

REACTIONS (1)
  - DRUG INEFFECTIVE [None]
